FAERS Safety Report 8531645-5 (Version None)
Quarter: 2012Q3

REPORT INFORMATION
  Report Type: 
  Country: None (occurrence: None)
  Receive Date: 20120723
  Receipt Date: 20120717
  Transmission Date: 20120928
  Serious: Yes (Death, Life-Threatening)
  Sender: FDA-Public Use
  Company Number: JP-CELGENEUS-087-50794-12072023

PATIENT
  Sex: Male
  Weight: 59 kg

DRUGS (19)
  1. MAXIPIME [Concomitant]
     Route: 065
     Dates: start: 20110522, end: 20110528
  2. VANCOMYCIN [Concomitant]
     Route: 065
     Dates: start: 20110525, end: 20110606
  3. PREDNISOLONE [Concomitant]
     Route: 065
     Dates: start: 20110512, end: 20110707
  4. VIDAZA [Suspect]
     Dosage: 75 MILLIGRAM/SQ. METER
     Route: 065
     Dates: start: 20110512, end: 20110518
  5. MEROPENEM [Concomitant]
     Route: 065
     Dates: start: 20110627, end: 20110710
  6. FUNGUARD [Concomitant]
     Route: 065
     Dates: start: 20110701
  7. FILDESIN [Concomitant]
     Route: 065
     Dates: start: 20110712, end: 20110712
  8. FILDESIN [Concomitant]
     Route: 065
     Dates: start: 20110719, end: 20110719
  9. NOVORAPID [Concomitant]
     Route: 065
     Dates: start: 20110512
  10. VANCOMYCIN [Concomitant]
     Route: 065
     Dates: start: 20110629, end: 20110708
  11. VANCOMYCIN [Concomitant]
     Route: 065
     Dates: start: 20110722
  12. SOLU-MEDROL [Concomitant]
     Route: 065
     Dates: start: 20110708
  13. CEFTAZIDIME SODIUM [Concomitant]
     Route: 065
     Dates: start: 20110722
  14. LANTUS [Concomitant]
     Route: 065
     Dates: start: 20110512
  15. SULPERAZON [Concomitant]
     Route: 065
     Dates: start: 20110711, end: 20110722
  16. DIFLUCAN [Concomitant]
     Route: 065
     Dates: start: 20110512, end: 20110630
  17. MAXIPIME [Concomitant]
     Route: 065
     Dates: start: 20110620, end: 20110627
  18. MEROPENEM [Concomitant]
     Route: 065
     Dates: start: 20110528, end: 20110606
  19. LEVOFLOXACIN [Concomitant]
     Route: 065
     Dates: start: 20110512, end: 20110522

REACTIONS (3)
  - BACTERAEMIA [None]
  - PNEUMONIA [None]
  - FEBRILE NEUTROPENIA [None]
